FAERS Safety Report 9346476 (Version 1)
Quarter: 2013Q2

REPORT INFORMATION
  Report Type: Spontaneous
  Country: US (occurrence: US)
  Receive Date: 20130613
  Receipt Date: 20130613
  Transmission Date: 20140414
  Serious: Yes (Death)
  Sender: FDA-Public Use
  Company Number: US-ASTRAZENECA-2013SE42413

PATIENT
  Age: 54 Year
  Sex: Female
  Weight: 99.8 kg

DRUGS (3)
  1. TOPROL-XL [Suspect]
     Indication: DIABETES MELLITUS
     Dosage: UNKNOWN, DAILY
     Route: 048
  2. TOPROL-XL [Suspect]
     Indication: CORONARY ARTERY BYPASS
     Dosage: UNKNOWN, DAILY
     Route: 048
  3. OTHER MEDICATIONS [Concomitant]

REACTIONS (1)
  - Lymphoma [Fatal]
